FAERS Safety Report 4605425-7 (Version None)
Quarter: 2005Q1

REPORT INFORMATION
  Report Type: 
  Country: None (occurrence: None)
  Receive Date: 20050310
  Receipt Date: 20040709
  Transmission Date: 20050727
  Serious: No
  Sender: FDA-Public Use
  Company Number: US-BRISTOL-MYERS SQUIBB COMPANY-12638359

PATIENT
  Age: 34 Year
  Sex: Female

DRUGS (1)
  1. MONISTAT [Suspect]
     Indication: VAGINAL MYCOSIS
     Route: 067
     Dates: start: 20040707, end: 20040707

REACTIONS (2)
  - HEADACHE [None]
  - VAGINAL PAIN [None]
